FAERS Safety Report 20211844 (Version 1)
Quarter: 2021Q4

REPORT INFORMATION
  Report Type: Spontaneous
  Country: PH (occurrence: PH)
  Receive Date: 20211221
  Receipt Date: 20211221
  Transmission Date: 20220303
  Serious: Yes (Death, Other)
  Sender: FDA-Public Use
  Company Number: PH-ASTELLAS-2021US046827

PATIENT
  Sex: Male

DRUGS (1)
  1. XTANDI [Suspect]
     Active Substance: ENZALUTAMIDE
     Indication: Prostate cancer
     Route: 048
     Dates: start: 202109, end: 202112

REACTIONS (4)
  - Metabolic encephalopathy [Fatal]
  - Disorientation [Unknown]
  - Confusional state [Unknown]
  - Infection [Unknown]

NARRATIVE: CASE EVENT DATE: 20211212
